FAERS Safety Report 5071757-4 (Version None)
Quarter: 2006Q3

REPORT INFORMATION
  Report Type: 
  Country: None (occurrence: None)
  Receive Date: 20060801
  Receipt Date: 20060725
  Transmission Date: 20061208
  Serious: Yes (Hospitalization)
  Sender: FDA-Public Use
  Company Number: FR200606006146

PATIENT
  Age: 35 Year
  Sex: Male

DRUGS (3)
  1. ZYPREXA [Suspect]
     Dosage: 10 MG, 2/D, ORAL
     Route: 048
     Dates: end: 20060521
  2. ESPERAL (DISULFIRAM) [Concomitant]
  3. SUBUTEX [Concomitant]

REACTIONS (7)
  - DYSPHONIA [None]
  - DYSPNOEA [None]
  - FACIAL PALSY [None]
  - NAUSEA [None]
  - NERVE ROOT LESION [None]
  - NYSTAGMUS [None]
  - QUADRIPARESIS [None]
